FAERS Safety Report 6531611-5 (Version None)
Quarter: 2010Q1

REPORT INFORMATION
  Report Type: 
  Country: None (occurrence: None)
  Receive Date: 20100108
  Receipt Date: 20091229
  Transmission Date: 20100710
  Serious: Yes (Hospitalization)
  Sender: FDA-Public Use
  Company Number: FR-PFIZER INC-2009315919

PATIENT
  Age: 66 Year
  Sex: Female

DRUGS (8)
  1. ATARAX [Suspect]
     Dosage: UNK
  2. CANDESARTAN CILEXETIL/HYDROCHLOROTHIAZIDE (ATACAND HCT) [Concomitant]
  3. TAHOR [Concomitant]
  4. IXPRIM [Concomitant]
  5. ALVERINE [Concomitant]
  6. TRIMEBUTINE MALEATE [Concomitant]
  7. DUPHALAC [Concomitant]
  8. EFFERALGAN [Concomitant]

REACTIONS (1)
  - DERMATITIS BULLOUS [None]
